FAERS Safety Report 6401784-3 (Version None)
Quarter: 2009Q4

REPORT INFORMATION
  Report Type: 
  Country: None (occurrence: None)
  Receive Date: 20091009
  Receipt Date: 20090925
  Transmission Date: 20100525
  Serious: Yes (Death)
  Sender: FDA-Public Use
  Company Number: 2009AL006394

PATIENT
  Age: 82 Year
  Sex: Female

DRUGS (3)
  1. METFORMIN HYDROCHLORIDE EXTENDED RELEASE [Suspect]
     Indication: TYPE 2 DIABETES MELLITUS
     Dosage: 2000 MG; QD; PO
     Route: 048
  2. LANTUS [Concomitant]
  3. NOVONORM [Concomitant]

REACTIONS (3)
  - LACTIC ACIDOSIS [None]
  - PULMONARY OEDEMA [None]
  - RENAL FAILURE ACUTE [None]
